FAERS Safety Report 22096384 (Version 3)
Quarter: 2023Q2

REPORT INFORMATION
  Report Type: Spontaneous
  Country: JP (occurrence: None)
  Receive Date: 20230315
  Receipt Date: 20230530
  Transmission Date: 20230722
  Serious: Yes (Hospitalization, Other)
  Sender: FDA-Public Use
  Company Number: 2023A058294

PATIENT
  Age: 41 Year
  Sex: Female
  Weight: 42 kg

DRUGS (8)
  1. LYNPARZA [Suspect]
     Active Substance: OLAPARIB
     Indication: Ovarian cancer
     Route: 048
     Dates: start: 20220907, end: 20221013
  2. LYNPARZA [Suspect]
     Active Substance: OLAPARIB
     Indication: Ovarian cancer
     Route: 048
     Dates: start: 20221222, end: 20230227
  3. LYNPARZA [Suspect]
     Active Substance: OLAPARIB
     Indication: Ovarian cancer
     Route: 048
     Dates: start: 20230315, end: 20230419
  4. AVASTIN [Concomitant]
     Active Substance: BEVACIZUMAB
     Indication: Ovarian cancer
     Route: 041
     Dates: start: 20220907, end: 20220928
  5. AVASTIN [Concomitant]
     Active Substance: BEVACIZUMAB
     Indication: Ovarian cancer
     Route: 041
     Dates: start: 20230118
  6. CELECOXIB [Concomitant]
     Active Substance: CELECOXIB
     Indication: Pain
     Route: 048
     Dates: start: 20220928, end: 20221004
  7. BROTIZOLAM [Concomitant]
     Active Substance: BROTIZOLAM
     Indication: Insomnia
     Route: 048
     Dates: start: 20220907
  8. KRACIE TOKISHAKUYAKUSANRYO EXTRACT FINE GRANULES [Concomitant]
     Indication: Menopausal symptoms
     Route: 048
     Dates: start: 20230413

REACTIONS (3)
  - Aplasia pure red cell [Recovering/Resolving]
  - Stoma obstruction [Unknown]
  - Nausea [Unknown]

NARRATIVE: CASE EVENT DATE: 20220907
